FAERS Safety Report 25915592 (Version 1)
Quarter: 2025Q4

REPORT INFORMATION
  Report Type: Spontaneous
  Country: EU (occurrence: EU)
  Receive Date: 20251013
  Receipt Date: 20251013
  Transmission Date: 20260117
  Serious: Yes (Other)
  Sender: MYLAN
  Company Number: EU-ANGESP-2025-038910

PATIENT
  Age: 14 Year
  Sex: Female

DRUGS (4)
  1. VENLAFAXINE [Interacting]
     Active Substance: VENLAFAXINE HYDROCHLORIDE
     Indication: Mood swings
     Dosage: UNK
  2. LATUDA [Interacting]
     Active Substance: LURASIDONE HYDROCHLORIDE
     Indication: Eating disorder
     Dosage: 74 MILLIGRAM
  3. LATUDA [Interacting]
     Active Substance: LURASIDONE HYDROCHLORIDE
     Dosage: 37 MILLIGRAM
  4. ZONISAMIDE [Concomitant]
     Active Substance: ZONISAMIDE
     Indication: Headache
     Dosage: UNK

REACTIONS (4)
  - Hyperprolactinaemia [Not Recovered/Not Resolved]
  - Amenorrhoea [Unknown]
  - Drug interaction [Unknown]
  - Off label use [Not Recovered/Not Resolved]
